FAERS Safety Report 25775740 (Version 1)
Quarter: 2025Q3

REPORT INFORMATION
  Report Type: Spontaneous
  Country: US (occurrence: US)
  Receive Date: 20250909
  Receipt Date: 20250909
  Transmission Date: 20251021
  Serious: No
  Sender: Teyro Labs
  Company Number: US-TEYRO-2024-TY-000454

PATIENT
  Sex: Female

DRUGS (10)
  1. GEMCITABINE [Suspect]
     Active Substance: GEMCITABINE
     Indication: Cervix carcinoma
     Route: 042
  2. GEMCITABINE [Suspect]
     Active Substance: GEMCITABINE
     Route: 042
  3. PLOCABULIN [Concomitant]
     Active Substance: PLOCABULIN
     Indication: Cervix carcinoma
     Route: 042
  4. PLOCABULIN [Concomitant]
     Active Substance: PLOCABULIN
     Route: 042
  5. PLOCABULIN [Concomitant]
     Active Substance: PLOCABULIN
     Route: 042
  6. PLOCABULIN [Concomitant]
     Active Substance: PLOCABULIN
     Route: 042
  7. PLOCABULIN [Concomitant]
     Active Substance: PLOCABULIN
     Route: 042
  8. PLOCABULIN [Concomitant]
     Active Substance: PLOCABULIN
     Route: 042
  9. PLOCABULIN [Concomitant]
     Active Substance: PLOCABULIN
     Route: 042
  10. PLOCABULIN [Concomitant]
     Active Substance: PLOCABULIN
     Route: 042

REACTIONS (1)
  - Off label use [Unknown]
